FAERS Safety Report 23392353 (Version 2)
Quarter: 2024Q1

REPORT INFORMATION
  Report Type: Spontaneous
  Country: AT (occurrence: None)
  Receive Date: 20240111
  Receipt Date: 20240228
  Transmission Date: 20240409
  Serious: Yes (Hospitalization)
  Sender: FDA-Public Use
  Company Number: 2024A001011

PATIENT
  Age: 56 Year
  Sex: Female

DRUGS (48)
  1. SEROQUEL XR [Suspect]
     Active Substance: QUETIAPINE FUMARATE
     Route: 048
     Dates: start: 20230619, end: 20230622
  2. SEROQUEL XR [Suspect]
     Active Substance: QUETIAPINE FUMARATE
     Route: 048
     Dates: start: 20230720, end: 20230804
  3. SEROQUEL XR [Suspect]
     Active Substance: QUETIAPINE FUMARATE
     Route: 048
     Dates: start: 20230615, end: 20230618
  4. SEROQUEL XR [Suspect]
     Active Substance: QUETIAPINE FUMARATE
     Route: 048
     Dates: start: 20230710, end: 20230719
  5. SEROQUEL XR [Suspect]
     Active Substance: QUETIAPINE FUMARATE
     Route: 048
     Dates: start: 20230623, end: 20230709
  6. SEROQUEL [Suspect]
     Active Substance: QUETIAPINE FUMARATE
     Route: 048
     Dates: start: 20230619, end: 20230707
  7. SEROQUEL [Suspect]
     Active Substance: QUETIAPINE FUMARATE
     Route: 048
     Dates: start: 20230708, end: 20230711
  8. SEROQUEL [Suspect]
     Active Substance: QUETIAPINE FUMARATE
     Route: 048
     Dates: start: 20230719, end: 20230720
  9. SEROQUEL [Suspect]
     Active Substance: QUETIAPINE FUMARATE
     Route: 048
     Dates: start: 20230712, end: 20230716
  10. SEROQUEL [Suspect]
     Active Substance: QUETIAPINE FUMARATE
     Route: 048
     Dates: start: 20230717, end: 20230718
  11. LAMICTAL [Suspect]
     Active Substance: LAMOTRIGINE
     Dates: start: 20230615, end: 20230724
  12. LAMICTAL [Suspect]
     Active Substance: LAMOTRIGINE
     Dates: start: 20230802, end: 20230804
  13. PANTOPRAZOLE SODIUM [Suspect]
     Active Substance: PANTOPRAZOLE SODIUM
     Dates: start: 20230723, end: 20230815
  14. PANTOPRAZOLE SODIUM [Suspect]
     Active Substance: PANTOPRAZOLE SODIUM
     Dates: start: 20230712, end: 20230722
  15. VALPROATE SODIUM [Suspect]
     Active Substance: VALPROATE SODIUM
     Dates: start: 20230712, end: 20230718
  16. VALPROATE SODIUM [Suspect]
     Active Substance: VALPROATE SODIUM
     Dates: start: 20230721, end: 20230722
  17. VALPROATE SODIUM [Suspect]
     Active Substance: VALPROATE SODIUM
     Dates: start: 20230720, end: 20230720
  18. VALPROATE SODIUM [Suspect]
     Active Substance: VALPROATE SODIUM
     Dates: start: 20230719, end: 20230719
  19. VALPROATE SODIUM [Suspect]
     Active Substance: VALPROATE SODIUM
     Dates: start: 20230720, end: 20230720
  20. VALPROATE SODIUM [Suspect]
     Active Substance: VALPROATE SODIUM
     Dates: start: 20230721, end: 20230722
  21. VALPROATE SODIUM [Suspect]
     Active Substance: VALPROATE SODIUM
     Dates: start: 20230711, end: 20230711
  22. PREGABALIN [Suspect]
     Active Substance: PREGABALIN
     Dates: start: 20230712, end: 20230719
  23. CLONIDINE [Concomitant]
     Active Substance: CLONIDINE
     Dates: start: 20230725, end: 20230726
  24. CLONIDINE [Concomitant]
     Active Substance: CLONIDINE
     Dates: start: 20230727, end: 20230804
  25. MOTRIM [Concomitant]
     Dates: start: 20230725, end: 20230729
  26. LOVENOX [Concomitant]
     Active Substance: ENOXAPARIN SODIUM
     Dates: start: 20230720, end: 20230731
  27. REPATHA [Concomitant]
     Active Substance: EVOLOCUMAB
     Dates: start: 20230625
  28. ALPRAZOLAM [Concomitant]
     Active Substance: ALPRAZOLAM
     Dates: start: 20230628, end: 20230628
  29. ALPRAZOLAM [Concomitant]
     Active Substance: ALPRAZOLAM
     Dates: start: 20230629, end: 20230702
  30. ALPRAZOLAM [Concomitant]
     Active Substance: ALPRAZOLAM
     Dates: start: 20230706, end: 20230716
  31. ALPRAZOLAM [Concomitant]
     Active Substance: ALPRAZOLAM
     Dates: start: 20230703, end: 20230705
  32. ALPRAZOLAM [Concomitant]
     Active Substance: ALPRAZOLAM
     Dates: start: 20230717, end: 20230719
  33. ASPIRIN [Concomitant]
     Active Substance: ASPIRIN
     Dates: start: 20230615, end: 20230815
  34. RISPERIDONE [Concomitant]
     Active Substance: RISPERIDONE
     Dates: start: 20230718, end: 20230725
  35. MELPERONE HYDROCHLORIDE [Concomitant]
     Active Substance: MELPERONE HYDROCHLORIDE
     Dates: start: 20230615, end: 20230717
  36. RIVOTRIL [Concomitant]
     Active Substance: CLONAZEPAM
     Dates: start: 20230726, end: 20230804
  37. EZETIMIBE\ROSUVASTATIN CALCIUM [Concomitant]
     Active Substance: EZETIMIBE\ROSUVASTATIN CALCIUM
     Dates: start: 20230615, end: 20230619
  38. ZELDOX [Concomitant]
     Active Substance: ZIPRASIDONE
     Dates: start: 20230801, end: 20230804
  39. ZELDOX [Concomitant]
     Active Substance: ZIPRASIDONE
     Dates: start: 20230725, end: 20230727
  40. ZELDOX [Concomitant]
     Active Substance: ZIPRASIDONE
     Dates: start: 20230728, end: 20230731
  41. NICORETTE [Concomitant]
     Active Substance: NICOTINE
     Dates: start: 20230727, end: 20230815
  42. TRAZODONE HYDROCHLORIDE [Concomitant]
     Active Substance: TRAZODONE HYDROCHLORIDE
     Dates: start: 20230721, end: 20230723
  43. TRAZODONE HYDROCHLORIDE [Concomitant]
     Active Substance: TRAZODONE HYDROCHLORIDE
     Dates: start: 20230720, end: 20230720
  44. HYDROCHLOROTHIAZIDE [Concomitant]
     Active Substance: HYDROCHLOROTHIAZIDE
     Dates: start: 20230626, end: 20230724
  45. CANDESARTAN [Concomitant]
     Active Substance: CANDESARTAN
     Dates: start: 20230626, end: 20230815
  46. TEMESTA [Concomitant]
     Dates: start: 20230721, end: 20230724
  47. TEMESTA [Concomitant]
     Dates: start: 20230720, end: 20230720
  48. POTASSIUM [Concomitant]
     Active Substance: POTASSIUM
     Dates: start: 20230707, end: 20230815

REACTIONS (1)
  - Delirium [Recovered/Resolved]

NARRATIVE: CASE EVENT DATE: 20230718
